FAERS Safety Report 24168739 (Version 1)
Quarter: 2024Q3

REPORT INFORMATION
  Report Type: Other
  Country: NL (occurrence: GR)
  Receive Date: 20240802
  Receipt Date: 20240802
  Transmission Date: 20241016
  Serious: Yes (Other)
  Sender: KOWA PHARM
  Company Number: None

PATIENT

DRUGS (5)
  1. PITAVASTATIN CALCIUM [Suspect]
     Active Substance: PITAVASTATIN CALCIUM
     Indication: Type V hyperlipidaemia
     Dosage: 1 DF, QD
     Dates: start: 20210302, end: 20240719
  2. ATORVASTATIN CALCIUM [Suspect]
     Active Substance: ATORVASTATIN CALCIUM
     Indication: Type V hyperlipidaemia
     Dosage: 1 DF, QD
     Dates: start: 20210302, end: 20240719
  3. EZETIMIBE [Suspect]
     Active Substance: EZETIMIBE
     Indication: Type V hyperlipidaemia
     Dosage: 1 DF, QD
     Dates: start: 20210302, end: 20240719
  4. FENOFIBRATE\PRAVASTATIN [Suspect]
     Active Substance: FENOFIBRATE\PRAVASTATIN
     Indication: Type V hyperlipidaemia
     Dosage: 1 DF, QD
     Dates: start: 20210302, end: 20240719
  5. LEVOTHYROXINE [Concomitant]
     Active Substance: LEVOTHYROXINE\LEVOTHYROXINE SODIUM
     Indication: Hypothyroidism
     Dosage: 1 DF, QD (50 MCG)
     Dates: start: 20220830

REACTIONS (3)
  - Flatulence [Recovered/Resolved]
  - Myalgia [Recovered/Resolved]
  - Drug intolerance [Unknown]

NARRATIVE: CASE EVENT DATE: 20210302
